FAERS Safety Report 15315648 (Version 1)
Quarter: 2018Q3

REPORT INFORMATION
  Report Type: Spontaneous
  Country: US (occurrence: US)
  Receive Date: 20180824
  Receipt Date: 20180824
  Transmission Date: 20181010
  Serious: Yes (Hospitalization, Other)
  Sender: FDA-Public Use
  Company Number: PHHY2018US075323

PATIENT
  Age: 15 Year
  Sex: Female

DRUGS (1)
  1. BUPROPION. [Suspect]
     Active Substance: BUPROPION
     Indication: DEPRESSION
     Dosage: 22 DF (6.6 GRAMS)
     Route: 065

REACTIONS (12)
  - Myoclonus [Recovered/Resolved]
  - Abdominal pain [Unknown]
  - Tachycardia [Unknown]
  - Muscle twitching [Recovered/Resolved]
  - Confusional state [Unknown]
  - Intentional overdose [Unknown]
  - Disorientation [Unknown]
  - Sinus tachycardia [Unknown]
  - Chest pain [Unknown]
  - Unresponsive to stimuli [Unknown]
  - Dizziness [Unknown]
  - Generalised tonic-clonic seizure [Recovered/Resolved]
